FAERS Safety Report 8067431-2 (Version None)
Quarter: 2012Q1

REPORT INFORMATION
  Report Type: 
  Country: None (occurrence: None)
  Receive Date: 20120124
  Receipt Date: 20120118
  Transmission Date: 20120608
  Serious: Yes (Other)
  Sender: FDA-Public Use
  Company Number: US-PFIZER INC-2012014946

PATIENT
  Age: 92 Year
  Sex: Male

DRUGS (2)
  1. PANTOPRAZOLE [Suspect]
     Dosage: UNK
     Route: 042
  2. PANTOPRAZOLE [Suspect]
     Dosage: UNK
     Route: 048

REACTIONS (8)
  - THINKING ABNORMAL [None]
  - MENTAL IMPAIRMENT [None]
  - DYSPHONIA [None]
  - DYSPNOEA [None]
  - DRUG HYPERSENSITIVITY [None]
  - HALLUCINATION [None]
  - DELIRIUM [None]
  - INSOMNIA [None]
